FAERS Safety Report 22118820 (Version 2)
Quarter: 2023Q2

REPORT INFORMATION
  Report Type: Spontaneous
  Country: IT (occurrence: IT)
  Receive Date: 20230321
  Receipt Date: 20230426
  Transmission Date: 20230722
  Serious: Yes (Other)
  Sender: FDA-Public Use
  Company Number: IT-MINISAL02-913809

PATIENT
  Age: 50 Year
  Sex: Male

DRUGS (3)
  1. ACETAMINOPHEN [Suspect]
     Active Substance: ACETAMINOPHEN
     Indication: Product used for unknown indication
     Dosage: 650 MILLIGRAM, DAILY, DOSAGE: 650UNIT OF MEASUREMENT: MILLIGRAMS FREQUENCY OF ADMINISTRATION: DAILY
     Route: 048
     Dates: start: 20221026
  2. TRAMADOL HYDROCHLORIDE [Suspect]
     Active Substance: TRAMADOL HYDROCHLORIDE
     Indication: Product used for unknown indication
     Dosage: 75 MILLIGRAM, DOSAGE: 75 UNIT OF MEASURE: MILLIGRAMS ROUTE OF ADMINISTRATION: ORAL
     Route: 048
     Dates: start: 20221026
  3. ACETAMINOPHEN\TRAMADOL [Suspect]
     Active Substance: ACETAMINOPHEN\TRAMADOL
     Indication: Product used for unknown indication
     Dosage: UNK (TRAMDOLOL 75MG /PARACETENOL 650 MG)
     Route: 048
     Dates: start: 20221026

REACTIONS (3)
  - Hypotension [Recovered/Resolved]
  - Nausea [Recovered/Resolved]
  - Vomiting [Recovered/Resolved]

NARRATIVE: CASE EVENT DATE: 20221027
